FAERS Safety Report 26135682 (Version 1)
Quarter: 2025Q4

REPORT INFORMATION
  Report Type: Spontaneous
  Country: US (occurrence: None)
  Receive Date: 20251208
  Receipt Date: 20251208
  Transmission Date: 20260117
  Serious: Yes (Hospitalization)
  Sender: FDA-CTU
  Company Number: None

PATIENT
  Age: 72 Year
  Sex: Female

DRUGS (1)
  1. HUMIRA [Suspect]
     Active Substance: ADALIMUMAB
     Indication: Crohn^s disease
     Dosage: 40/0.4 MG/ML EVERY OTHER WEEK SUBCUTANEOUS
     Route: 058
     Dates: start: 20250625, end: 202511

REACTIONS (4)
  - Coccidioidomycosis [None]
  - Intracranial aneurysm [None]
  - Crohn^s disease [None]
  - Therapy cessation [None]

NARRATIVE: CASE EVENT DATE: 20251121
